FAERS Safety Report 9270809 (Version 3)
Quarter: 2013Q2

REPORT INFORMATION
  Report Type: Spontaneous
  Country: US (occurrence: US)
  Receive Date: 20130503
  Receipt Date: 20130620
  Transmission Date: 20140414
  Serious: No
  Sender: FDA-Public Use
  Company Number: US-PFIZER INC-2013128458

PATIENT
  Sex: Male

DRUGS (1)
  1. LEVOXYL [Suspect]
     Dosage: UNK

REACTIONS (2)
  - Product odour abnormal [Unknown]
  - Blood thyroid stimulating hormone increased [Unknown]
